FAERS Safety Report 15307051 (Version 1)
Quarter: 2018Q3

REPORT INFORMATION
  Report Type: Spontaneous
  Country: AU (occurrence: AU)
  Receive Date: 20180822
  Receipt Date: 20180822
  Transmission Date: 20181010
  Serious: Yes (Other)
  Sender: FDA-Public Use
  Company Number: AU-BAYER-2018-152619

PATIENT
  Age: 55 Year

DRUGS (1)
  1. NEXAVAR [Suspect]
     Active Substance: SORAFENIB
     Indication: HEPATOCELLULAR CARCINOMA
     Dosage: UNK
     Dates: start: 2016

REACTIONS (8)
  - Weight decreased [None]
  - Hepatocellular carcinoma [None]
  - Diarrhoea [None]
  - Fatigue [None]
  - Hypertension [None]
  - Alpha 1 foetoprotein increased [None]
  - Paronychia [None]
  - Palmar-plantar erythrodysaesthesia syndrome [None]

NARRATIVE: CASE EVENT DATE: 201712
